FAERS Safety Report 16577925 (Version 6)
Quarter: 2019Q3

REPORT INFORMATION
  Report Type: Spontaneous
  Country: US (occurrence: US)
  Receive Date: 20190716
  Receipt Date: 20190805
  Transmission Date: 20191004
  Serious: No
  Sender: FDA-Public Use
  Company Number: US-PFIZER INC-2019300642

PATIENT
  Age: 62 Year
  Sex: Female
  Weight: 154 kg

DRUGS (3)
  1. LYRICA [Suspect]
     Active Substance: PREGABALIN
     Indication: FIBROMYALGIA
     Dosage: 75 MG, 3X/DAY (EVERY 8 HOURS)
     Route: 048
  2. LYRICA [Suspect]
     Active Substance: PREGABALIN
     Indication: OSTEOARTHRITIS
  3. LYRICA [Suspect]
     Active Substance: PREGABALIN
     Indication: MYALGIA

REACTIONS (4)
  - Restless legs syndrome [Not Recovered/Not Resolved]
  - Memory impairment [Unknown]
  - Weight fluctuation [Unknown]
  - Insomnia [Unknown]

NARRATIVE: CASE EVENT DATE: 20190705
